FAERS Safety Report 10168109 (Version 1)
Quarter: 2014Q2

REPORT INFORMATION
  Report Type: Spontaneous
  Country: US (occurrence: US)
  Receive Date: 20140512
  Receipt Date: 20140512
  Transmission Date: 20141212
  Serious: Yes (Other)
  Sender: FDA-Public Use
  Company Number: US-TEVA-480442USA

PATIENT
  Sex: Male
  Weight: 76.73 kg

DRUGS (2)
  1. PROAIR HFA [Suspect]
     Indication: BRONCHITIS
     Dosage: 2 PUFFS THREE TIMES A DAY
     Route: 055
     Dates: start: 20140502
  2. ANTIBIOTICS [Concomitant]

REACTIONS (3)
  - Choking [Not Recovered/Not Resolved]
  - Respiratory tract congestion [Not Recovered/Not Resolved]
  - Movement disorder [Not Recovered/Not Resolved]
